FAERS Safety Report 18547512 (Version 2)
Quarter: 2020Q4

REPORT INFORMATION
  Report Type: Spontaneous
  Country: JP (occurrence: JP)
  Receive Date: 20201125
  Receipt Date: 20201207
  Transmission Date: 20210114
  Serious: No
  Sender: FDA-Public Use
  Company Number: JP-ASTRAZENECA-2020SF54932

PATIENT
  Age: 40 Year
  Sex: Male

DRUGS (1)
  1. SYMBICORT [Suspect]
     Active Substance: BUDESONIDE\FORMOTEROL FUMARATE DIHYDRATE
     Indication: ASTHMA
     Route: 055
     Dates: start: 20200426, end: 20200506

REACTIONS (2)
  - Oral candidiasis [Recovered/Resolved]
  - Polymerase chain reaction positive [Recovered/Resolved]

NARRATIVE: CASE EVENT DATE: 20200502
